FAERS Safety Report 5277861-X (Version None)
Quarter: 2007Q1

REPORT INFORMATION
  Report Type: 
  Country: None (occurrence: None)
  Receive Date: 20070327
  Receipt Date: 20070321
  Transmission Date: 20070707
  Serious: Yes (Life-Threatening, Hospitalization, Other)
  Sender: FDA-Public Use
  Company Number: GB-MERCK-0703USA04216

PATIENT
  Age: 63 Year
  Sex: Male

DRUGS (7)
  1. PRINIVIL [Suspect]
     Route: 048
     Dates: end: 20070107
  2. BECLOMETHASONE DIPROPIONATE [Concomitant]
  3. OMEPRAZOLE [Concomitant]
     Route: 065
  4. ACETAMINOPHEN [Concomitant]
     Route: 065
  5. ALBUTEROL [Concomitant]
  6. SALMETEROL [Concomitant]
  7. TRIMOVATE [Concomitant]
     Route: 065

REACTIONS (1)
  - PANCREATITIS NECROTISING [None]
